FAERS Safety Report 18242267 (Version 2)
Quarter: 2020Q4

REPORT INFORMATION
  Report Type: Spontaneous
  Country: IN (occurrence: IN)
  Receive Date: 20200908
  Receipt Date: 20201113
  Transmission Date: 20210113
  Serious: Yes (Hospitalization, Other)
  Sender: FDA-Public Use
  Company Number: IN-ACCORD-199752

PATIENT
  Age: 43 Year
  Sex: Female

DRUGS (5)
  1. IRINOTECAN [Concomitant]
     Active Substance: IRINOTECAN
     Indication: ADENOCARCINOMA
  2. OXALIPLATIN. [Concomitant]
     Active Substance: OXALIPLATIN
     Indication: ADENOCARCINOMA
  3. FLUOROURACIL. [Suspect]
     Active Substance: FLUOROURACIL
     Indication: ADENOCARCINOMA
     Dosage: 5-FU 400 MG/M2 BOLUS ON DAY 1, 5-FU 3200 MG/M2 INFUSION NEXT 46 HOURS
     Route: 041
  4. FOLINIC ACID [Concomitant]
     Active Substance: LEUCOVORIN
     Indication: ADENOCARCINOMA
  5. FLUOROURACIL. [Suspect]
     Active Substance: FLUOROURACIL
     Indication: ADENOCARCINOMA
     Dosage: 5-FU 400 MG/M2 BOLUS ON DAY 1, 5-FU 3200 MG/M2 INFUSION NEXT 46 HOURS
     Route: 040

REACTIONS (2)
  - Toxic encephalopathy [Recovering/Resolving]
  - Coma [Recovering/Resolving]
